FAERS Safety Report 9902748 (Version 1)
Quarter: 2014Q1

REPORT INFORMATION
  Report Type: Report from Study
  Country: MX (occurrence: MX)
  Receive Date: 20140217
  Receipt Date: 20140217
  Transmission Date: 20141002
  Serious: Yes (Other)
  Sender: FDA-Public Use
  Company Number: PHHY2014MX018522

PATIENT
  Age: 68 Year
  Sex: Female

DRUGS (5)
  1. ACLASTA [Suspect]
     Indication: OSTEOPOROSIS
     Dosage: 1 APPLICATION OF 5 MG/100 ML, ANNUAL
     Route: 042
     Dates: start: 20131218
  2. CALCIUM + VITAMIN D [Concomitant]
     Indication: BONE DISORDER
     Dosage: 1 DF, DAILY
     Dates: start: 2012
  3. RANITIDINE [Concomitant]
     Indication: GASTRIC DISORDER
     Dosage: 2 DF, DAILY
     Dates: start: 2011
  4. METFORMIN [Concomitant]
     Indication: BLOOD GLUCOSE ABNORMAL
     Dosage: 2 DF, DAILY
     Dates: start: 2012
  5. PSYLLIUM//PLANTAGO AFRA [Concomitant]
     Indication: CONSTIPATION
     Dosage: 1 SPOON DAILY
     Dates: start: 2011

REACTIONS (4)
  - Speech disorder [Recovered/Resolved]
  - Abasia [Recovered/Resolved]
  - Somnolence [Recovered/Resolved]
  - Dizziness [Recovered/Resolved]
